FAERS Safety Report 13210025 (Version 3)
Quarter: 2017Q2

REPORT INFORMATION
  Report Type: Report from Study
  Country: US (occurrence: US)
  Receive Date: 20170209
  Receipt Date: 20170427
  Transmission Date: 20170830
  Serious: Yes (Death, Hospitalization)
  Sender: FDA-Public Use
  Company Number: US-ACTELION-A-NJ2017-149648

PATIENT
  Age: 57 Year
  Sex: Female

DRUGS (3)
  1. UPTRAVI [Suspect]
     Active Substance: SELEXIPAG
     Indication: PORTOPULMONARY HYPERTENSION
     Dosage: 200 MCG, BID
     Route: 048
     Dates: start: 20170117, end: 20170211
  2. UPTRAVI [Suspect]
     Active Substance: SELEXIPAG
     Dosage: 800 MCG, BID
     Route: 048
  3. OPSUMIT [Suspect]
     Active Substance: MACITENTAN
     Indication: PORTOPULMONARY HYPERTENSION
     Dosage: 10 MG, QD
     Route: 048
     Dates: start: 20150212

REACTIONS (5)
  - Right ventricular failure [Fatal]
  - Kidney infection [Unknown]
  - Hepatic failure [Fatal]
  - Fluid retention [Unknown]
  - Pulmonary arterial hypertension [Fatal]

NARRATIVE: CASE EVENT DATE: 20170127
